FAERS Safety Report 5479551-7 (Version None)
Quarter: 2007Q4

REPORT INFORMATION
  Report Type: 
  Country: None (occurrence: None)
  Receive Date: 20071008
  Receipt Date: 20070928
  Transmission Date: 20080405
  Serious: Yes (Other)
  Sender: FDA-Public Use
  Company Number: ZA-AVENTIS-200714029EU

PATIENT
  Age: 57 Year
  Sex: Male

DRUGS (7)
  1. ENOXAPARIN SODIUM [Suspect]
     Indication: PROPHYLAXIS
     Route: 058
     Dates: start: 20070808, end: 20070818
  2. ROCEPHIN                           /00672201/ [Concomitant]
     Indication: PROPHYLAXIS
     Dates: start: 20070807, end: 20070819
  3. ACTRAPID [Concomitant]
  4. VOLTAREN [Concomitant]
     Dates: start: 20070811, end: 20070813
  5. AMIKIN [Concomitant]
     Route: 042
     Dates: start: 20070819, end: 20070822
  6. TAZOCIN [Concomitant]
     Route: 042
     Dates: start: 20070812, end: 20070823
  7. GENTAMICIN [Concomitant]
     Dates: start: 20070801, end: 20070801

REACTIONS (3)
  - FLUSHING [None]
  - PYREXIA [None]
  - TACHYCARDIA [None]
